FAERS Safety Report 23324186 (Version 1)
Quarter: 2023Q4

REPORT INFORMATION
  Report Type: Spontaneous
  Country: US (occurrence: US)
  Receive Date: 20231221
  Receipt Date: 20231221
  Transmission Date: 20240110
  Serious: Yes (Other)
  Sender: FDA-Public Use
  Company Number: US-ALEMBIC PHARMACUETICALS LIMITED-2023SCAL001225

PATIENT

DRUGS (3)
  1. PRAZOSIN HYDROCHLORIDE [Suspect]
     Active Substance: PRAZOSIN HYDROCHLORIDE
     Indication: Hypertension
     Dosage: UNK
     Route: 065
  2. METYROSINE [Concomitant]
     Active Substance: METYROSINE
     Indication: Hypertension
     Dosage: UNK
     Route: 065
  3. METYROSINE [Concomitant]
     Active Substance: METYROSINE
     Dosage: 250 MG EVERY SIX HOURS
     Route: 065

REACTIONS (3)
  - Atrial fibrillation [Unknown]
  - Drug intolerance [Unknown]
  - Hypotension [Unknown]
